FAERS Safety Report 10890988 (Version 1)
Quarter: 2015Q1

REPORT INFORMATION
  Report Type: Report from Study
  Country: US (occurrence: US)
  Receive Date: 20150305
  Receipt Date: 20150305
  Transmission Date: 20150721
  Serious: Yes (Hospitalization)
  Sender: FDA-Public Use
  Company Number: US-TAKEDA-2015MPI000850

PATIENT
  Sex: Male

DRUGS (2)
  1. BLINDED [Suspect]
     Active Substance: UNSPECIFIED INGREDIENT
     Dosage: 2.5 MG, 1/WEEK
     Route: 058
  2. VELCADE [Suspect]
     Active Substance: BORTEZOMIB
     Dosage: 2.5 MG, 1/WEEK
     Route: 058

REACTIONS (1)
  - Hospitalisation [Unknown]
